FAERS Safety Report 12340302 (Version 1)
Quarter: 2016Q2

REPORT INFORMATION
  Report Type: Spontaneous
  Country: US (occurrence: None)
  Receive Date: 20160505
  Receipt Date: 20160505
  Transmission Date: 20160815
  Serious: Yes (Other)
  Sender: FDA-Public Use
  Company Number: None

PATIENT
  Age: 42 Year
  Sex: Female
  Weight: 83.01 kg

DRUGS (4)
  1. PROPOFOL. [Suspect]
     Active Substance: PROPOFOL
     Indication: SEDATION
     Dosage: INTO A VEIN
     Route: 042
     Dates: start: 20160428, end: 20160428
  2. PROBIOTICS [Concomitant]
     Active Substance: PROBIOTICS NOS
  3. PROPOFOL. [Suspect]
     Active Substance: PROPOFOL
     Indication: COLONOSCOPY
     Dosage: INTO A VEIN
     Route: 042
     Dates: start: 20160428, end: 20160428
  4. PROZAC [Concomitant]
     Active Substance: FLUOXETINE HYDROCHLORIDE

REACTIONS (10)
  - Pain [None]
  - Post procedural complication [None]
  - Lethargy [None]
  - Diarrhoea [None]
  - Decreased appetite [None]
  - Chills [None]
  - Hyperhidrosis [None]
  - White blood cell count increased [None]
  - Pyrexia [None]
  - Myalgia [None]

NARRATIVE: CASE EVENT DATE: 20160428
